FAERS Safety Report 7245665-4 (Version None)
Quarter: 2011Q1

REPORT INFORMATION
  Report Type: 
  Country: None (occurrence: None)
  Receive Date: 20110126
  Receipt Date: 20101102
  Transmission Date: 20110831
  Serious: No
  Sender: FDA-Public Use
  Company Number: US-BAUSCH-2010BL006193

PATIENT
  Age: 62 Year
  Sex: Female

DRUGS (2)
  1. SYNTHROID [Concomitant]
  2. TOBRAMYCIN AND DEXAMETHASONE [Suspect]
     Indication: EYE INFECTION
     Route: 047
     Dates: start: 20101026, end: 20101031

REACTIONS (6)
  - EYE IRRITATION [None]
  - VISION BLURRED [None]
  - INSTILLATION SITE PAIN [None]
  - EYE DISCHARGE [None]
  - OCULAR HYPERAEMIA [None]
  - CONDITION AGGRAVATED [None]
